FAERS Safety Report 13212645 (Version 3)
Quarter: 2020Q2

REPORT INFORMATION
  Report Type: Report from Study
  Country: AU (occurrence: AU)
  Receive Date: 20170210
  Receipt Date: 20200515
  Transmission Date: 20200713
  Serious: Yes (Other)
  Sender: FDA-Public Use
  Company Number: AU-JNJFOC-20170205575

PATIENT
  Sex: Male

DRUGS (8)
  1. DAPAGLIFLOZIN. [Concomitant]
     Active Substance: DAPAGLIFLOZIN
  2. JANUMET [Concomitant]
     Active Substance: METFORMIN HYDROCHLORIDE\SITAGLIPTIN PHOSPHATE
  3. STELARA [Suspect]
     Active Substance: USTEKINUMAB
     Indication: PSORIASIS
     Route: 058
     Dates: start: 20160708
  4. METFORMIN [Concomitant]
     Active Substance: METFORMIN HYDROCHLORIDE
  5. ELEUPHRAT [Concomitant]
     Active Substance: BETAMETHASONE DIPROPIONATE
  6. GLIMEPIRIDE. [Concomitant]
     Active Substance: GLIMEPIRIDE
  7. DAIVOBET [Concomitant]
     Active Substance: BETAMETHASONE DIPROPIONATE\CALCIPOTRIENE
  8. STELARA [Suspect]
     Active Substance: USTEKINUMAB
     Route: 058
     Dates: start: 20170120

REACTIONS (3)
  - Psoriasis [Not Recovered/Not Resolved]
  - Cellulitis [Unknown]
  - Localised infection [Not Recovered/Not Resolved]
